FAERS Safety Report 6395247-1 (Version None)
Quarter: 2009Q4

REPORT INFORMATION
  Report Type: 
  Country: None (occurrence: None)
  Receive Date: 20091009
  Receipt Date: 20090930
  Transmission Date: 20100525
  Serious: Yes (Other)
  Sender: FDA-Public Use
  Company Number: JP-JNJFOC-20091001708

PATIENT
  Age: 58 Year
  Sex: Male
  Weight: 72 kg

DRUGS (3)
  1. MICONAZOLE [Suspect]
     Route: 048
     Dates: start: 20090810, end: 20090814
  2. MICONAZOLE [Suspect]
     Indication: ORAL CANDIDIASIS
     Route: 048
     Dates: start: 20090810, end: 20090814
  3. WARFARIN SODIUM [Interacting]
     Indication: THROMBOSIS PROPHYLAXIS
     Route: 048
     Dates: start: 20020101, end: 20090823

REACTIONS (3)
  - DRUG INTERACTION [None]
  - MOUTH HAEMORRHAGE [None]
  - PROTHROMBIN TIME PROLONGED [None]
